FAERS Safety Report 20632262 (Version 2)
Quarter: 2022Q2

REPORT INFORMATION
  Report Type: Spontaneous
  Country: CA (occurrence: CA)
  Receive Date: 20220324
  Receipt Date: 20220401
  Transmission Date: 20220721
  Serious: Yes (Other)
  Sender: FDA-Public Use
  Company Number: ALC2022CA001388

PATIENT

DRUGS (1)
  1. LUTEIN\MINERALS\VITAMINS\ZEAXANTHIN [Suspect]
     Active Substance: LUTEIN\MINERALS\VITAMINS\ZEAXANTHIN
     Indication: Product used for unknown indication
     Dosage: UNK
     Route: 048

REACTIONS (3)
  - Choking [Unknown]
  - Product size issue [Unknown]
  - Wrong technique in product usage process [Unknown]
